FAERS Safety Report 24530246 (Version 1)
Quarter: 2024Q4

REPORT INFORMATION
  Report Type: Spontaneous
  Country: JP (occurrence: JP)
  Receive Date: 20241021
  Receipt Date: 20241021
  Transmission Date: 20250115
  Serious: Yes (Hospitalization, Other)
  Sender: ALEXION PHARMACEUTICALS
  Company Number: JP-ASTRAZENECA-240106319_032320_P_1

PATIENT
  Age: 22 Year

DRUGS (3)
  1. SAPHNELO [Suspect]
     Active Substance: ANIFROLUMAB-FNIA
  2. PREDNISOLONE [Concomitant]
     Active Substance: PREDNISOLONE
     Indication: Central nervous system lupus
     Dosage: NUMBER OF SEPARATE DOSAGES UNKNOWN
     Route: 065
  3. MYCOPHENOLATE MOFETIL [Concomitant]
     Active Substance: MYCOPHENOLATE MOFETIL
     Indication: Central nervous system lupus
     Dosage: DOSE UNKNOWN
     Route: 065

REACTIONS (3)
  - Disseminated varicella [Recovering/Resolving]
  - Liver disorder [Recovering/Resolving]
  - Coagulopathy [Recovering/Resolving]
